FAERS Safety Report 4685251-3 (Version None)
Quarter: 2005Q2

REPORT INFORMATION
  Report Type: 
  Country: None (occurrence: None)
  Receive Date: 20050608
  Receipt Date: 20050322
  Transmission Date: 20051028
  Serious: Yes (Death)
  Sender: FDA-Public Use
  Company Number: JP-SANOFI-SYNTHELABO-F01200500458

PATIENT
  Sex: Male
  Weight: 61.95 kg

DRUGS (15)
  1. CLOPIDOGREL BISULFATE [Suspect]
     Indication: CORONARY ARTERY THROMBOSIS
     Dosage: 300 MG LOADING DOSE FOLLOWED BY 75 MG/DAY
     Route: 048
     Dates: start: 20040830, end: 20050301
  2. BAYASPIRIN [Concomitant]
     Indication: ANGINA PECTORIS
     Dosage: 100 MG
     Route: 065
     Dates: start: 20040830
  3. HEPARIN [Concomitant]
     Indication: CORONARY ARTERY THROMBOSIS
     Dosage: 10000 IU
     Route: 042
     Dates: start: 20040831, end: 20040831
  4. MYOCOR [Concomitant]
     Indication: ANGINA PECTORIS
     Dosage: UNK
     Route: 065
     Dates: start: 20040904, end: 20040916
  5. NITROPEN [Concomitant]
     Indication: ANGINA PECTORIS
     Dosage: 0.3 MG
     Route: 060
     Dates: start: 20040920, end: 20040920
  6. NITROPEN [Concomitant]
     Dosage: 0.3 MG
     Route: 060
     Dates: start: 20040927, end: 20040928
  7. NITOROL [Concomitant]
     Indication: ANGINA PECTORIS
     Dosage: 3 MG
     Route: 022
     Dates: start: 20040831, end: 20040831
  8. MICARDIS [Concomitant]
     Indication: HYPERTENSION
     Dosage: 40 MG
     Route: 048
     Dates: start: 20040830
  9. SELOKEN [Concomitant]
     Indication: HYPERTENSION
     Dosage: 20 MG
     Route: 048
     Dates: start: 20040830
  10. HERBESSER [Concomitant]
     Indication: HYPERTENSION
     Dosage: 200 MG
     Route: 048
     Dates: start: 20040830
  11. DOYLE [Concomitant]
     Indication: INFECTION PROPHYLAXIS
     Dosage: 1 G
     Route: 042
     Dates: start: 20040831, end: 20040901
  12. HORIZON [Concomitant]
     Indication: CATHETERISATION CARDIAC
     Dosage: 5 MG
     Route: 048
     Dates: start: 20040831, end: 20040831
  13. IOPAMIDOL [Concomitant]
     Indication: ANGIOGRAM
     Dosage: 175 ML
     Route: 022
     Dates: start: 20040831, end: 20040831
  14. XYLOCAINE [Concomitant]
     Indication: LOCAL ANAESTHESIA
     Dosage: 1 ML
     Route: 065
     Dates: start: 20040831, end: 20040831
  15. MAGLAX [Concomitant]
     Indication: LAXATIVE SUPPORTIVE CARE
     Dosage: 6600 MG
     Route: 048
     Dates: start: 20040918

REACTIONS (2)
  - CARDIO-RESPIRATORY ARREST [None]
  - SUDDEN DEATH [None]
